FAERS Safety Report 9723336 (Version 1)
Quarter: 2013Q4

REPORT INFORMATION
  Report Type: Spontaneous
  Country: US (occurrence: US)
  Receive Date: 20131202
  Receipt Date: 20131202
  Transmission Date: 20140711
  Serious: No
  Sender: FDA-Public Use
  Company Number: US-GLAXOSMITHKLINE-A1010790B

PATIENT
  Sex: Male
  Weight: 3.1 kg

DRUGS (15)
  1. FLONASE [Suspect]
     Indication: SINUSITIS
     Dosage: 1SPR TWICE PER DAY
     Route: 064
     Dates: start: 2003, end: 20121215
  2. FLOVENT [Suspect]
     Indication: ASTHMA
     Dosage: 2PUFF TWICE PER DAY
     Route: 064
     Dates: start: 2002
  3. ALBUTEROL [Suspect]
     Indication: ASTHMA
     Route: 064
     Dates: start: 2003
  4. KEPPRA [Suspect]
     Indication: EPILEPSY
     Dosage: 1500MG TWICE PER DAY
     Route: 064
  5. PRISTIQ [Suspect]
     Indication: POST-TRAUMATIC STRESS DISORDER
     Dosage: 50MG PER DAY
     Route: 064
     Dates: start: 2004
  6. SINGULAIR [Suspect]
     Indication: ASTHMA
     Dosage: 10MG PER DAY
     Route: 064
     Dates: start: 2004
  7. SUDAFED [Suspect]
     Indication: SINUS CONGESTION
     Route: 064
     Dates: start: 2010
  8. BIAXIN [Suspect]
     Indication: BRONCHITIS
     Route: 064
     Dates: start: 20121201, end: 20121205
  9. TRAZODONE [Suspect]
     Indication: INSOMNIA
     Dosage: 100MG AS REQUIRED
     Route: 064
     Dates: start: 2002
  10. TEMAZEPAM [Concomitant]
  11. FIORICET [Concomitant]
  12. VITAMIN D [Concomitant]
  13. MULTIVITAMIN [Concomitant]
  14. AMOXICILLIN [Concomitant]
  15. PREDNISONE [Concomitant]

REACTIONS (2)
  - Pyrexia [Recovered/Resolved]
  - Foetal exposure during pregnancy [Unknown]
